FAERS Safety Report 16994922 (Version 1)
Quarter: 2019Q4

REPORT INFORMATION
  Report Type: Spontaneous
  Country: US (occurrence: US)
  Receive Date: 20191105
  Receipt Date: 20191105
  Transmission Date: 20200122
  Serious: No
  Sender: FDA-Public Use
  Company Number: US-PFIZER INC-2019474697

PATIENT
  Age: 67 Year
  Sex: Male
  Weight: 61.23 kg

DRUGS (1)
  1. VIAGRA [Suspect]
     Active Substance: SILDENAFIL CITRATE
     Indication: ERECTILE DYSFUNCTION
     Dosage: 100 MG, TOOK 100 MG ONCE/SCORED THE PILL TOOK 50 MG/SCORED IT AGAIN TOOK 25 MG/BACK TO 50 MG
     Dates: start: 201808, end: 201811

REACTIONS (2)
  - Dizziness [Recovered/Resolved]
  - Headache [Recovered/Resolved]

NARRATIVE: CASE EVENT DATE: 201808
